FAERS Safety Report 6161834-9 (Version None)
Quarter: 2009Q2

REPORT INFORMATION
  Report Type: 
  Country: None (occurrence: None)
  Receive Date: 20090417
  Receipt Date: 20090417
  Transmission Date: 20091009
  Serious: No
  Sender: FDA-Public Use
  Company Number: None

PATIENT
  Sex: Male
  Weight: 90.7194 kg

DRUGS (2)
  1. SERTRALINE [Suspect]
     Indication: ANTIDEPRESSANT THERAPY
     Dosage: 1 TAB 1 PER DAY PO
     Route: 048
     Dates: start: 20060101, end: 20090411
  2. SERTRALINE [Suspect]
     Indication: ANXIETY
     Dosage: 1 TAB 1 PER DAY PO
     Route: 048
     Dates: start: 20060101, end: 20090411

REACTIONS (6)
  - COUGH [None]
  - FOREIGN BODY TRAUMA [None]
  - OROPHARYNGEAL PAIN [None]
  - PRODUCT COATING ISSUE [None]
  - RETCHING [None]
  - THROAT IRRITATION [None]
